FAERS Safety Report 7547597-0 (Version None)
Quarter: 2011Q2

REPORT INFORMATION
  Report Type: 
  Country: None (occurrence: None)
  Receive Date: 20110614
  Receipt Date: 20110607
  Transmission Date: 20111010
  Serious: Yes (Other)
  Sender: FDA-Public Use
  Company Number: US-BAYER-2011-049293

PATIENT
  Age: 35 Year
  Sex: Male

DRUGS (1)
  1. MAGNEVIST [Suspect]
     Indication: NUCLEAR MAGNETIC RESONANCE IMAGING BRAIN
     Dosage: 17.3 ML, ONCE
     Route: 042
     Dates: start: 20110607, end: 20110607

REACTIONS (4)
  - PHARYNGEAL OEDEMA [None]
  - RASH [None]
  - COUGH [None]
  - LIP SWELLING [None]
